FAERS Safety Report 19103697 (Version 1)
Quarter: 2021Q2

REPORT INFORMATION
  Report Type: Spontaneous
  Country: FR (occurrence: FR)
  Receive Date: 20210407
  Receipt Date: 20210407
  Transmission Date: 20210717
  Serious: Yes (Hospitalization)
  Sender: FDA-Public Use
  Company Number: FR-PFIZER INC-2021339924

PATIENT
  Age: 87 Year
  Sex: Female
  Weight: 66 kg

DRUGS (15)
  1. TIANEPTINE SODIUM [Concomitant]
     Active Substance: TIANEPTINE SODIUM
  2. IMOVANE [Suspect]
     Active Substance: ZOPICLONE
     Dosage: 0.5 DF, 1X/DAY
     Route: 048
  3. CORDARONE [Suspect]
     Active Substance: AMIODARONE HYDROCHLORIDE
     Dosage: 1 DF, 5 DAYS OUT OF 7
     Route: 048
  4. MOVICOL [Concomitant]
     Active Substance: POLYETHYLENE GLYCOL 3350\POTASSIUM CHLORIDE\SODIUM BICARBONATE\SODIUM CHLORIDE
  5. SODIUM BICARBONATE. [Concomitant]
     Active Substance: SODIUM BICARBONATE
  6. PREVISCAN [FLUINDIONE] [Concomitant]
     Active Substance: FLUINDIONE
  7. LASILIX SPECIAL [FUROSEMIDE] [Suspect]
     Active Substance: FUROSEMIDE
     Dosage: 250 MG, 1X/DAY
     Route: 048
  8. DALACINE [CLINDAMYCIN PHOSPHATE] [Concomitant]
     Active Substance: CLINDAMYCIN PHOSPHATE
  9. BISOCE [Suspect]
     Active Substance: BISOPROLOL
     Dosage: 1 DF, 1X/DAY
     Route: 048
  10. ACUPAN [Suspect]
     Active Substance: NEFOPAM HYDROCHLORIDE
     Indication: PAIN
     Dosage: 120 MG, 1X/DAY
     Route: 048
     Dates: start: 20161114, end: 201612
  11. PANTOPRAZOLE [Concomitant]
     Active Substance: PANTOPRAZOLE
  12. LEVOTHYROX [Concomitant]
     Active Substance: LEVOTHYROXINE
  13. LYRICA [Suspect]
     Active Substance: PREGABALIN
     Dosage: 150 MG, 1X/DAY
     Route: 048
  14. IZALGI [Suspect]
     Active Substance: ACETAMINOPHEN\OPIUM
     Indication: PAIN
     Dosage: 1 DF EVERY 6 HOURS
     Route: 048
     Dates: start: 20161114, end: 201612
  15. SEEBRI BREEZHALER [Concomitant]
     Active Substance: GLYCOPYRROLATE

REACTIONS (2)
  - Fall [Recovered/Resolved with Sequelae]
  - Fracture [Recovered/Resolved with Sequelae]

NARRATIVE: CASE EVENT DATE: 20161130
